FAERS Safety Report 4963405-6 (Version None)
Quarter: 2006Q2

REPORT INFORMATION
  Report Type: 
  Country: None (occurrence: None)
  Receive Date: 20060405
  Receipt Date: 20060329
  Transmission Date: 20061013
  Serious: Yes (Death, Hospitalization)
  Sender: FDA-Public Use
  Company Number: US-SANOFI-SYNTHELABO-A03200601887

PATIENT
  Sex: Male

DRUGS (2)
  1. PLAVIX [Suspect]
     Indication: CARDIAC DISORDER
     Dosage: UNK
     Route: 048
  2. CYPHER STENT [Suspect]
     Indication: CARDIAC DISORDER
     Dosage: UNK

REACTIONS (1)
  - DEATH [None]
